FAERS Safety Report 8370856-9 (Version None)
Quarter: 2012Q2

REPORT INFORMATION
  Report Type: 
  Country: None (occurrence: None)
  Receive Date: 20120518
  Receipt Date: 20111207
  Transmission Date: 20120825
  Serious: No
  Sender: FDA-Public Use
  Company Number: US-ASTRAZENECA-2011SE78724

PATIENT
  Age: 77 Year
  Sex: Male

DRUGS (2)
  1. PRILOSEC OTC [Suspect]
     Indication: INCREASED UPPER AIRWAY SECRETION
     Route: 048
     Dates: start: 20111210
  2. PROSTATE MEDICATION [Concomitant]
     Dosage: UNKNOWN

REACTIONS (2)
  - DIZZINESS [None]
  - OFF LABEL USE [None]
